FAERS Safety Report 7961207-X (Version None)
Quarter: 2011Q4

REPORT INFORMATION
  Report Type: 
  Country: None (occurrence: None)
  Receive Date: 20111207
  Receipt Date: 20111202
  Transmission Date: 20120403
  Serious: Yes (Hospitalization)
  Sender: FDA-Public Use
  Company Number: US-BRISTOL-MYERS SQUIBB COMPANY-16216897

PATIENT
  Age: 70 Year
  Sex: Male
  Weight: 171 kg

DRUGS (12)
  1. ONDANSETRON [Concomitant]
  2. IMDUR [Concomitant]
  3. VITAMIN B-12 [Concomitant]
     Dates: start: 20110727, end: 20111011
  4. PERCOCET [Concomitant]
  5. COMPAZINE [Concomitant]
  6. DIGOXIN [Concomitant]
  7. PEPCID [Concomitant]
  8. ZOCOR [Concomitant]
  9. PEMETREXED DISODIUM [Suspect]
     Indication: NON-SMALL CELL LUNG CANCER
     Dosage: LAST DOSE:19SEP11
     Route: 042
     Dates: start: 20110804, end: 20111006
  10. FOLIC ACID [Concomitant]
     Dates: start: 20110727, end: 20111011
  11. VICODIN [Concomitant]
  12. CARBOPLATIN [Suspect]
     Indication: NON-SMALL CELL LUNG CANCER
     Dosage: 1 DF: 6 AUC LAST DOSE:19SEP11
     Route: 042
     Dates: start: 20110804, end: 20111006

REACTIONS (2)
  - HYPERCALCAEMIA [None]
  - NAUSEA [None]
